FAERS Safety Report 10548853 (Version 17)
Quarter: 2016Q4

REPORT INFORMATION
  Report Type: Report from Study
  Country: JP (occurrence: JP)
  Receive Date: 20141028
  Receipt Date: 20161007
  Transmission Date: 20170206
  Serious: Yes (Death, Hospitalization, Other)
  Sender: FDA-Public Use
  Company Number: JP-B.I. PHARMACEUTICALS,INC./RIDGEFIELD-2014-BI-46897NB

PATIENT
  Age: 81 Year
  Sex: Female
  Weight: 37 kg

DRUGS (13)
  1. GILOTRIF [Suspect]
     Active Substance: AFATINIB
     Route: 048
     Dates: start: 20150303, end: 20150309
  2. NAIXAN [Suspect]
     Active Substance: NAPROXEN SODIUM
     Indication: BACK PAIN
     Route: 048
     Dates: start: 20150216, end: 20150219
  3. OXYCONTIN [Suspect]
     Active Substance: OXYCODONE HYDROCHLORIDE
     Indication: BACK PAIN
     Route: 048
     Dates: start: 20150218, end: 20150220
  4. GILOTRIF [Suspect]
     Active Substance: AFATINIB
     Indication: LUNG ADENOCARCINOMA
     Route: 048
     Dates: start: 20140923, end: 20140930
  5. GILOTRIF [Suspect]
     Active Substance: AFATINIB
     Route: 048
     Dates: start: 20150129, end: 20150219
  6. OMEPRAL [Concomitant]
     Active Substance: OMEPRAZOLE
     Indication: LUNG ADENOCARCINOMA
     Route: 065
     Dates: start: 20150310, end: 20150311
  7. NEXIUM [Concomitant]
     Active Substance: ESOMEPRAZOLE MAGNESIUM
     Indication: LUNG ADENOCARCINOMA
     Route: 065
     Dates: start: 20150213, end: 20150222
  8. RANMARK [Concomitant]
     Active Substance: DENOSUMAB
     Indication: LUNG ADENOCARCINOMA
     Route: 065
     Dates: start: 20150216
  9. GILOTRIF [Suspect]
     Active Substance: AFATINIB
     Route: 048
     Dates: start: 20150312, end: 20150917
  10. LOXOPROFEN [Suspect]
     Active Substance: LOXOPROFEN
     Indication: BACK PAIN
     Route: 048
     Dates: start: 20150223, end: 20150224
  11. GENTACIN [Concomitant]
     Active Substance: GENTAMICIN SULFATE
     Indication: PRODUCT USED FOR UNKNOWN INDICATION
     Route: 065
  12. REBAMIPIDE [Concomitant]
     Active Substance: REBAMIPIDE
     Indication: GASTRITIS PROPHYLAXIS
     Route: 048
     Dates: start: 20150217, end: 20150219
  13. NEXIUM [Concomitant]
     Active Substance: ESOMEPRAZOLE MAGNESIUM
     Route: 065
     Dates: start: 20150312

REACTIONS (14)
  - Renal disorder [Recovered/Resolved]
  - Back pain [Not Recovered/Not Resolved]
  - Malignant neoplasm progression [Fatal]
  - Vomiting [Recovered/Resolved]
  - Cancer pain [Not Recovered/Not Resolved]
  - Liver disorder [Recovered/Resolved]
  - Metastases to meninges [Recovered/Resolved]
  - Pneumonia cryptococcal [Recovered/Resolved]
  - Anaemia [Recovered/Resolved]
  - Diarrhoea [Recovered/Resolved]
  - Vomiting [Recovered/Resolved]
  - Duodenal ulcer haemorrhage [Recovered/Resolved]
  - Cholecystitis acute [Recovered/Resolved]
  - Diarrhoea [Recovered/Resolved]

NARRATIVE: CASE EVENT DATE: 20140929
